FAERS Safety Report 7162025-5 (Version None)
Quarter: 2010Q4

REPORT INFORMATION
  Report Type: 
  Country: None (occurrence: None)
  Receive Date: 20101215
  Receipt Date: 20100901
  Transmission Date: 20110411
  Serious: Yes (Other)
  Sender: FDA-Public Use
  Company Number: US-PFIZER INC-2010005834

PATIENT
  Sex: Female

DRUGS (2)
  1. LYRICA [Suspect]
     Indication: FIBROMYALGIA
     Dosage: UNK
  2. LYRICA [Suspect]
     Indication: PAIN

REACTIONS (5)
  - DIPLOPIA [None]
  - EYE SWELLING [None]
  - SUICIDAL IDEATION [None]
  - VISION BLURRED [None]
  - WITHDRAWAL SYNDROME [None]
